FAERS Safety Report 17482291 (Version 2)
Quarter: 2020Q1

REPORT INFORMATION
  Report Type: Spontaneous
  Country: ES (occurrence: ES)
  Receive Date: 20200302
  Receipt Date: 20200323
  Transmission Date: 20200409
  Serious: Yes (Other)
  Sender: FDA-Public Use
  Company Number: ES-ELI_LILLY_AND_COMPANY-ES202002008891

PATIENT
  Sex: Female

DRUGS (6)
  1. ABEMACICLIB [Suspect]
     Active Substance: ABEMACICLIB
     Indication: BREAST CANCER METASTATIC
     Dosage: 150 MG, UNKNOWN
     Route: 065
     Dates: start: 20191007, end: 20191114
  2. ABEMACICLIB [Suspect]
     Active Substance: ABEMACICLIB
     Dosage: 100 MG, UNKNOWN
     Route: 065
     Dates: start: 20200206
  3. ABEMACICLIB [Suspect]
     Active Substance: ABEMACICLIB
     Dosage: 150 MG, UNKNOWN
     Route: 065
     Dates: start: 20191202, end: 20200109
  4. LORAZEPAM. [Concomitant]
     Active Substance: LORAZEPAM
     Indication: ANXIOLYTIC THERAPY
  5. OMEPRAZOLE. [Concomitant]
     Active Substance: OMEPRAZOLE
     Indication: GASTRIC DISORDER
  6. LETROZOLE. [Concomitant]
     Active Substance: LETROZOLE
     Indication: BREAST CANCER

REACTIONS (7)
  - Anaemia [Unknown]
  - Platelet toxicity [Recovered/Resolved]
  - Platelet toxicity [Unknown]
  - Neutropenia [Recovered/Resolved]
  - Neutropenia [Unknown]
  - Hepatotoxicity [Unknown]
  - Hepatotoxicity [Recovering/Resolving]
